FAERS Safety Report 9579396 (Version 1)
Quarter: 2013Q4

REPORT INFORMATION
  Report Type: Spontaneous
  Country: US (occurrence: US)
  Receive Date: 20131001
  Receipt Date: 20131001
  Transmission Date: 20140711
  Serious: No
  Sender: FDA-Public Use
  Company Number: US-AMGEN-USASP2013017731

PATIENT
  Age: 52 Year
  Sex: Female

DRUGS (13)
  1. ENBREL [Suspect]
     Indication: PRODUCT USED FOR UNKNOWN INDICATION
     Dosage: 50 MG, QWK
     Route: 058
  2. METAXALONE [Concomitant]
     Dosage: 800 MG, UNK
  3. MULTIVITAMINS, PLAIN [Concomitant]
     Dosage: UNK
  4. FISH OIL [Concomitant]
     Dosage: UNK
  5. ALLOPURINOL [Concomitant]
     Dosage: 100 MG, UNK
  6. BENICAR [Concomitant]
     Dosage: 20 MG, UNK
  7. PRAVASTATIN [Concomitant]
     Dosage: 20 MG, UNK
  8. SYNTHROID [Concomitant]
     Dosage: 25 MUG, UNK
  9. PROVENTIL                          /00139501/ [Concomitant]
     Dosage: 90 MUG, UNK
  10. TYLENOL                            /00020001/ [Concomitant]
     Dosage: 325 MG, UNK
  11. PANTOPRAZOLE [Concomitant]
     Dosage: 20 MG, UNK
  12. HYDROCHLOROTH [Concomitant]
     Dosage: 12.5 MG, UNK
  13. KLOR CON [Concomitant]
     Dosage: 10 MEQ, UNK

REACTIONS (3)
  - Ocular hyperaemia [Unknown]
  - Eye discharge [Unknown]
  - Eye swelling [Unknown]
